FAERS Safety Report 4936663-1 (Version None)
Quarter: 2006Q1

REPORT INFORMATION
  Report Type: 
  Country: None (occurrence: None)
  Receive Date: 20060302
  Receipt Date: 20060213
  Transmission Date: 20060701
  Serious: Yes (Hospitalization)
  Sender: FDA-Public Use
  Company Number: US200511001075

PATIENT
  Sex: Male

DRUGS (3)
  1. HUMULIN L [Suspect]
     Indication: DIABETES MELLITUS
  2. HUMULIN R [Suspect]
     Indication: DIABETES MELLITUS
  3. INSULIN, ANIMAL (INSULIN, ANIMAL UNKNOWN FORMULATION) [Suspect]
     Indication: DIABETES MELLITUS

REACTIONS (3)
  - CARDIAC DISORDER [None]
  - HEART RATE IRREGULAR [None]
  - VASCULAR BYPASS GRAFT [None]
